FAERS Safety Report 6876873-X (Version None)
Quarter: 2010Q2

REPORT INFORMATION
  Report Type: 
  Country: None (occurrence: None)
  Receive Date: 20100616
  Receipt Date: 20100322
  Transmission Date: 20101027
  Serious: No
  Sender: FDA-Public Use
  Company Number: DSA_42833_2010

PATIENT
  Sex: Male

DRUGS (1)
  1. XENAZINE [Suspect]
     Indication: DYSKINESIA
     Dosage: 12.5 MG QD ORAL, 12.5 MG BID ORAL
     Route: 048
     Dates: start: 20100301

REACTIONS (1)
  - DELUSIONAL DISORDER, UNSPECIFIED TYPE [None]
